FAERS Safety Report 12755148 (Version 7)
Quarter: 2019Q3

REPORT INFORMATION
  Report Type: Spontaneous
  Country: JP (occurrence: JP)
  Receive Date: 20160916
  Receipt Date: 20190830
  Transmission Date: 20191004
  Serious: Yes (Hospitalization, Other)
  Sender: FDA-Public Use
  Company Number: JP-JNJFOC-20160915062

PATIENT
  Age: 74 Year
  Sex: Male
  Weight: 64 kg

DRUGS (23)
  1. TAKEPRON [Concomitant]
     Active Substance: LANSOPRAZOLE
     Indication: PROPHYLAXIS
     Route: 048
     Dates: start: 20141230
  2. WARFARIN [Concomitant]
     Active Substance: WARFARIN
     Route: 048
     Dates: start: 20160819
  3. EQUA [Concomitant]
     Active Substance: VILDAGLIPTIN
     Indication: TYPE 2 DIABETES MELLITUS
     Dosage: BEFORE ADMINISTRATION OF CANAGLIFLOZIN
     Route: 048
  4. SYMBICORT [Concomitant]
     Active Substance: BUDESONIDE\FORMOTEROL FUMARATE DIHYDRATE
     Dosage: 2 PUFFS X 2/DAY
     Dates: start: 20151124
  5. WARFARIN [Concomitant]
     Active Substance: WARFARIN
     Route: 048
     Dates: start: 20160517, end: 20160808
  6. EQUMET [Concomitant]
     Active Substance: METFORMIN HYDROCHLORIDE\VILDAGLIPTIN
     Indication: TYPE 2 DIABETES MELLITUS
     Route: 048
     Dates: start: 20170926, end: 20171225
  7. SEIBULE [Concomitant]
     Active Substance: MIGLITOL
     Route: 048
     Dates: start: 20190212
  8. CANAGLIFLOZIN [Suspect]
     Active Substance: CANAGLIFLOZIN
     Indication: TYPE 2 DIABETES MELLITUS
     Route: 048
     Dates: start: 20160518
  9. COVERSYL [Concomitant]
     Active Substance: PERINDOPRIL
     Route: 048
     Dates: start: 20141230
  10. DIART [Concomitant]
     Active Substance: AZOSEMIDE
     Route: 048
     Dates: start: 20160811
  11. COMPLAVIN [Concomitant]
     Active Substance: ASPIRIN\CLOPIDOGREL BISULFATE
     Route: 048
     Dates: start: 20151014, end: 20160808
  12. WARFARIN [Concomitant]
     Active Substance: WARFARIN
     Route: 048
     Dates: start: 20160809, end: 20160818
  13. BAYASPIRIN [Concomitant]
     Active Substance: ASPIRIN
     Route: 048
     Dates: start: 20160809
  14. CRESTOR [Concomitant]
     Active Substance: ROSUVASTATIN CALCIUM
     Dosage: BEFORE ADMINISTRATION OF CANAGLIFLOZIN
     Route: 048
  15. SPIRONOLACTONE. [Concomitant]
     Active Substance: SPIRONOLACTONE
     Route: 048
     Dates: start: 20150107
  16. GLIMEPIRIDE. [Concomitant]
     Active Substance: GLIMEPIRIDE
     Indication: TYPE 2 DIABETES MELLITUS
     Route: 048
     Dates: start: 20170228
  17. SEIBULE [Concomitant]
     Active Substance: MIGLITOL
     Indication: TYPE 2 DIABETES MELLITUS
     Route: 048
     Dates: start: 20171226, end: 20190211
  18. DIART [Concomitant]
     Active Substance: AZOSEMIDE
     Route: 048
     Dates: start: 20150109, end: 20160808
  19. MAINTATE [Concomitant]
     Active Substance: BISOPROLOL FUMARATE
     Dosage: BEFORE ADMINISTRATION OF CANAGLIFLOZIN
     Route: 048
  20. AZOSEMIDE [Concomitant]
     Active Substance: AZOSEMIDE
     Route: 048
     Dates: start: 20180703
  21. ONON [Concomitant]
     Active Substance: PRANLUKAST
     Route: 048
     Dates: start: 20141230
  22. ALDACTONE A [Concomitant]
     Active Substance: SPIRONOLACTONE
     Route: 048
     Dates: start: 20150107
  23. SPIRIVA [Concomitant]
     Active Substance: TIOTROPIUM BROMIDE MONOHYDRATE
     Dosage: 1 PUFF PER DAY
     Dates: start: 20150119

REACTIONS (13)
  - Asthma [Recovered/Resolved]
  - Cholelithiasis [Not Recovered/Not Resolved]
  - Diverticulum intestinal [Not Recovered/Not Resolved]
  - Bladder diverticulum [Not Recovered/Not Resolved]
  - Hyponatraemia [Recovered/Resolved]
  - Pollakiuria [Recovering/Resolving]
  - Renal cyst [Not Recovered/Not Resolved]
  - Chronic gastritis [Not Recovered/Not Resolved]
  - Pneumonia [Recovered/Resolved]
  - Dehydration [Recovering/Resolving]
  - Decreased appetite [Recovered/Resolved]
  - Chronic obstructive pulmonary disease [Recovered/Resolved]
  - Iron deficiency anaemia [Recovering/Resolving]

NARRATIVE: CASE EVENT DATE: 201608
